FAERS Safety Report 19977687 (Version 1)
Quarter: 2021Q4

REPORT INFORMATION
  Report Type: Spontaneous
  Country: US (occurrence: US)
  Receive Date: 20211020
  Receipt Date: 20211020
  Transmission Date: 20220303
  Serious: No
  Sender: FDA-Public Use
  Company Number: US-ALLERGAN-2117812US

PATIENT
  Age: 58 Year
  Sex: Female

DRUGS (2)
  1. LINZESS [Suspect]
     Active Substance: LINACLOTIDE
     Indication: Constipation
     Dosage: 145 ?G, QAM
     Route: 048
     Dates: start: 20210506
  2. OMEPRAZOLE [Concomitant]
     Active Substance: OMEPRAZOLE
     Dosage: 40 MG, QAM
     Route: 048

REACTIONS (1)
  - Therapeutic response delayed [Unknown]

NARRATIVE: CASE EVENT DATE: 20210506
